FAERS Safety Report 8312601-9 (Version None)
Quarter: 2012Q2

REPORT INFORMATION
  Report Type: 
  Country: None (occurrence: None)
  Receive Date: 20120424
  Receipt Date: 20120413
  Transmission Date: 20120825
  Serious: Yes (Congenital Anomaly)
  Sender: FDA-Public Use
  Company Number: DSA_56187_2012

PATIENT
  Sex: Female

DRUGS (4)
  1. PRENATAL VITAMINS /07426201/ [Concomitant]
  2. PRILOSEC [Concomitant]
  3. BUPROPION HYDROCHLORIDE [Suspect]
     Indication: DEPRESSION
     Dosage: (450 MG QD ORAL), (300 MG QD ORAL)
     Route: 048
     Dates: start: 19920401
  4. ZYRTEC [Concomitant]

REACTIONS (4)
  - MATERNAL DRUGS AFFECTING FOETUS [None]
  - MATERNAL EXPOSURE DURING PREGNANCY [None]
  - HYPOPLASTIC LEFT HEART SYNDROME [None]
  - CAESAREAN SECTION [None]
